FAERS Safety Report 6220375-0 (Version None)
Quarter: 2009Q2

REPORT INFORMATION
  Report Type: 
  Country: None (occurrence: None)
  Receive Date: 20090610
  Receipt Date: 20090604
  Transmission Date: 20091009
  Serious: Yes (Death, Hospitalization)
  Sender: FDA-Public Use
  Company Number: US-CELGENEUS-163-21880-09041743

PATIENT
  Sex: Male

DRUGS (3)
  1. REVLIMID [Suspect]
     Indication: MULTIPLE MYELOMA
     Route: 048
     Dates: start: 20081101, end: 20090101
  2. REVLIMID [Suspect]
     Route: 048
     Dates: start: 20061201, end: 20070801
  3. REVLIMID [Suspect]
     Route: 048
     Dates: start: 20080901, end: 20081001

REACTIONS (9)
  - BACK PAIN [None]
  - EPISTAXIS [None]
  - FULL BLOOD COUNT DECREASED [None]
  - MALIGNANT NEOPLASM PROGRESSION [None]
  - MULTI-ORGAN FAILURE [None]
  - MULTIPLE MYELOMA [None]
  - NEUTROPENIA [None]
  - PNEUMONIA [None]
  - STAPHYLOCOCCAL SEPSIS [None]
